FAERS Safety Report 22931267 (Version 3)
Quarter: 2024Q1

REPORT INFORMATION
  Report Type: Spontaneous
  Country: CA (occurrence: CA)
  Receive Date: 20230911
  Receipt Date: 20240312
  Transmission Date: 20240410
  Serious: Yes (Life-Threatening, Other)
  Sender: FDA-Public Use
  Company Number: CA-PFIZER INC-PV202300032278

PATIENT
  Age: 56 Year
  Sex: Female
  Weight: 64 kg

DRUGS (5)
  1. RUXIENCE [Suspect]
     Active Substance: RITUXIMAB-PVVR
     Indication: Anti-neutrophil cytoplasmic antibody positive vasculitis
     Dosage: 650 MG, WEEKLY (EVERY 4 WEEKS)
     Route: 042
     Dates: start: 20230302
  2. RUXIENCE [Suspect]
     Active Substance: RITUXIMAB-PVVR
     Dosage: 650 MG, FOR 4 WEEKS
     Route: 042
     Dates: start: 20230310
  3. RUXIENCE [Suspect]
     Active Substance: RITUXIMAB-PVVR
     Dosage: 650 MG, FOR 4 WEEKS
     Route: 042
     Dates: start: 20230310
  4. RUXIENCE [Suspect]
     Active Substance: RITUXIMAB-PVVR
     Dosage: 500MG EVERY 6 MONTHS
     Route: 042
     Dates: start: 20230323
  5. RUXIENCE [Suspect]
     Active Substance: RITUXIMAB-PVVR
     Dosage: 500 MG, EVERY 6 MONTHS
     Route: 042
     Dates: start: 20231004

REACTIONS (5)
  - Episcleritis [Unknown]
  - Visual impairment [Unknown]
  - Deafness [Unknown]
  - Ear injury [Unknown]
  - Off label use [Unknown]

NARRATIVE: CASE EVENT DATE: 20230302
